FAERS Safety Report 24872746 (Version 1)
Quarter: 2025Q1

REPORT INFORMATION
  Report Type: Spontaneous
  Country: US (occurrence: US)
  Receive Date: 20250122
  Receipt Date: 20250122
  Transmission Date: 20250408
  Serious: No
  Sender: BRISTOL-MYERS SQUIBB COMPANY
  Company Number: US-BRISTOL-MYERS SQUIBB COMPANY-2025-009568

PATIENT
  Age: 80 Year
  Sex: Female

DRUGS (1)
  1. ELIQUIS [Suspect]
     Active Substance: APIXABAN
     Indication: Pulmonary embolism

REACTIONS (1)
  - Cellulitis [Recovering/Resolving]
